FAERS Safety Report 9881493 (Version 3)
Quarter: 2014Q1

REPORT INFORMATION
  Report Type: Spontaneous
  Country: US (occurrence: None)
  Receive Date: 20140205
  Receipt Date: 20140331
  Transmission Date: 20141002
  Serious: Yes (Hospitalization)
  Sender: FDA-Public Use
  Company Number: 2014RT000014

PATIENT
  Age: 16 Year
  Sex: Male
  Weight: 54.4 kg

DRUGS (1)
  1. PROCYSBI DELAYED-RELEASE [Suspect]
     Indication: CYSTINOSIS
     Route: 048
     Dates: start: 2011

REACTIONS (3)
  - Renal transplant [None]
  - Cystinosis [None]
  - Disease progression [None]
